FAERS Safety Report 6480403-4 (Version None)
Quarter: 2009Q4

REPORT INFORMATION
  Report Type: 
  Country: None (occurrence: None)
  Receive Date: 20091208
  Receipt Date: 20091201
  Transmission Date: 20100525
  Serious: Yes (Death, Life-Threatening)
  Sender: FDA-Public Use
  Company Number: GB-SANOFI-AVENTIS-2009SA006228

PATIENT
  Sex: Female
  Weight: 70 kg

DRUGS (14)
  1. CLEXANE [Suspect]
     Route: 058
     Dates: start: 20090912
  2. TARCEVA [Suspect]
     Route: 048
     Dates: start: 20090824, end: 20090911
  3. AMITRIPTYLINE [Concomitant]
     Dates: start: 20090911
  4. CEPHALEXIN [Concomitant]
     Route: 048
     Dates: start: 20090916
  5. CHLORHEXIDINE GLUCONATE [Concomitant]
     Route: 050
  6. DEXAMETHASONE TAB [Concomitant]
     Route: 048
     Dates: start: 20090908, end: 20090911
  7. DEXAMETHASONE TAB [Concomitant]
     Route: 042
     Dates: start: 20090911
  8. DOXYCYCLINE [Concomitant]
     Indication: INFECTION
     Route: 048
     Dates: start: 02090911
  9. HALOPERIDOL [Concomitant]
     Route: 048
     Dates: start: 20090918
  10. LACTULOSE [Concomitant]
     Dates: start: 20090916
  11. MORPHINE SULFATE [Concomitant]
     Indication: PAIN
     Route: 048
     Dates: start: 20090908
  12. ONDANSETRON [Concomitant]
     Dates: start: 20090911
  13. SENNA [Concomitant]
     Dates: start: 20090916
  14. SIMVASTATIN [Concomitant]
     Route: 048
     Dates: end: 20090911

REACTIONS (8)
  - AGITATION [None]
  - CONFUSIONAL STATE [None]
  - DEATH [None]
  - DIARRHOEA [None]
  - MALIGNANT NEOPLASM PROGRESSION [None]
  - NON-SMALL CELL LUNG CANCER [None]
  - PAIN [None]
  - THROMBOCYTOPENIA [None]
